FAERS Safety Report 10796331 (Version 12)
Quarter: 2016Q4

REPORT INFORMATION
  Report Type: Spontaneous
  Country: CA (occurrence: CA)
  Receive Date: 20150216
  Receipt Date: 20161205
  Transmission Date: 20170206
  Serious: Yes (Life-Threatening, Hospitalization, Other)
  Sender: FDA-Public Use
  Company Number: CA-ROCHE-1538458

PATIENT
  Age: 65 Year
  Sex: Female

DRUGS (8)
  1. PLAQUINOL [Suspect]
     Active Substance: HYDROXYCHLOROQUINE SULFATE
     Indication: RHEUMATOID ARTHRITIS
     Route: 065
  2. ARAVA [Suspect]
     Active Substance: LEFLUNOMIDE
     Indication: RHEUMATOID ARTHRITIS
     Route: 065
  3. METHOTREXATE. [Suspect]
     Active Substance: METHOTREXATE
     Indication: RHEUMATOID ARTHRITIS
     Route: 048
     Dates: start: 1990
  4. PREDNISONE. [Concomitant]
     Active Substance: PREDNISONE
  5. FOLIC ACID. [Concomitant]
     Active Substance: FOLIC ACID
  6. METHOTREXATE SODIUM. [Suspect]
     Active Substance: METHOTREXATE SODIUM
     Indication: RHEUMATOID ARTHRITIS
     Route: 048
  7. ACTEMRA [Suspect]
     Active Substance: TOCILIZUMAB
     Indication: RHEUMATOID ARTHRITIS
     Route: 065
  8. METHOTREXATE SODIUM. [Suspect]
     Active Substance: METHOTREXATE SODIUM
     Route: 048
     Dates: start: 1992

REACTIONS (16)
  - Ill-defined disorder [Unknown]
  - Fatigue [Unknown]
  - Pneumonitis [Unknown]
  - Arthralgia [Unknown]
  - Pneumonia [Unknown]
  - Diarrhoea [Unknown]
  - Osteomyelitis [Recovering/Resolving]
  - Clostridium difficile infection [Unknown]
  - Postoperative wound infection [Unknown]
  - Gastrointestinal disorder [Unknown]
  - Localised infection [Not Recovered/Not Resolved]
  - Impaired healing [Unknown]
  - Red blood cell sedimentation rate increased [Unknown]
  - Pleurisy [Unknown]
  - Malaise [Unknown]
  - C-reactive protein increased [Unknown]
